FAERS Safety Report 20454432 (Version 2)
Quarter: 2022Q1

REPORT INFORMATION
  Report Type: Spontaneous
  Country: CA (occurrence: CA)
  Receive Date: 20220210
  Receipt Date: 20220309
  Transmission Date: 20220423
  Serious: No
  Sender: FDA-Public Use
  Company Number: CA-LUPIN PHARMACEUTICALS INC.-2022-01657

PATIENT
  Age: 60 Year
  Sex: Male

DRUGS (5)
  1. BETAMETHASONE [Suspect]
     Active Substance: BETAMETHASONE
     Indication: Chronic spontaneous urticaria
     Dosage: UNK, CREAM
     Route: 061
     Dates: start: 20210402
  2. HYDROCORTISONE VALERATE [Suspect]
     Active Substance: HYDROCORTISONE VALERATE
     Indication: Chronic spontaneous urticaria
     Dosage: UNK, CREAM
     Route: 061
     Dates: start: 20210402
  3. AstraZeneca/Oxford COVID-19 vaccine [Concomitant]
     Indication: COVID-19 immunisation
     Dosage: UNK, FIRST DOSE
     Route: 065
     Dates: start: 20210315
  4. PREDNISONE [Concomitant]
     Active Substance: PREDNISONE
     Indication: Chronic spontaneous urticaria
     Dosage: UNK
     Route: 065
     Dates: start: 202104
  5. BILASTINE [Concomitant]
     Active Substance: BILASTINE
     Indication: Chronic spontaneous urticaria
     Dosage: 20 MG, QD
     Route: 065
     Dates: start: 202104

REACTIONS (1)
  - Drug ineffective [Unknown]
